FAERS Safety Report 5110856-5 (Version None)
Quarter: 2006Q3

REPORT INFORMATION
  Report Type: 
  Country: None (occurrence: None)
  Receive Date: 20060918
  Receipt Date: 20060831
  Transmission Date: 20061208
  Serious: Yes (Other)
  Sender: FDA-Public Use
  Company Number: 8018686

PATIENT
  Age: 20 Year
  Sex: Male

DRUGS (2)
  1. KEPPRA [Suspect]
     Indication: CONVULSION
  2. VALPROIC ACID [Suspect]
     Indication: CONVULSION

REACTIONS (3)
  - BONE MARROW FAILURE [None]
  - DIARRHOEA [None]
  - LEUKOPENIA [None]
